FAERS Safety Report 7938643-0 (Version None)
Quarter: 2011Q4

REPORT INFORMATION
  Report Type: 
  Country: None (occurrence: None)
  Receive Date: 20111123
  Receipt Date: 20111116
  Transmission Date: 20120403
  Serious: Yes (Hospitalization, Disabling, Other)
  Sender: FDA-Public Use
  Company Number: US-MERCK-1104USA03261

PATIENT
  Age: 58 Year
  Sex: Female
  Weight: 83 kg

DRUGS (8)
  1. CYMBALTA [Concomitant]
     Indication: DEPRESSION
     Route: 065
     Dates: start: 20050101
  2. ZOLOFT [Concomitant]
     Indication: DEPRESSION
     Route: 065
     Dates: start: 20010101
  3. FOSAMAX [Suspect]
     Route: 048
     Dates: start: 20080212, end: 20110201
  4. FOSAMAX [Suspect]
     Indication: OSTEOPENIA
     Route: 048
     Dates: start: 20070926, end: 20071201
  5. ATIVAN [Concomitant]
     Indication: ANXIETY
     Route: 065
     Dates: start: 20060101, end: 20090101
  6. FOSAMAX [Suspect]
     Indication: OSTEOPOROSIS
     Route: 048
     Dates: start: 20070926, end: 20071201
  7. FOSAMAX [Suspect]
     Route: 048
     Dates: start: 20080212, end: 20110201
  8. LAMICTAL [Concomitant]
     Indication: DEPRESSION
     Route: 065
     Dates: start: 20000101

REACTIONS (28)
  - DYSPNOEA [None]
  - GINGIVAL DISORDER [None]
  - HEADACHE [None]
  - ABSCESS ORAL [None]
  - MULTIPLE FRACTURES [None]
  - COUGH [None]
  - ADVERSE EVENT [None]
  - EPISTAXIS [None]
  - JAW DISORDER [None]
  - ABNORMAL WEIGHT GAIN [None]
  - ORAL INFECTION [None]
  - IMPAIRED HEALING [None]
  - POLLAKIURIA [None]
  - SKIN DISORDER [None]
  - APHTHOUS STOMATITIS [None]
  - OSTEONECROSIS OF JAW [None]
  - BLOOD CHOLESTEROL INCREASED [None]
  - ORAL DISORDER [None]
  - INCREASED TENDENCY TO BRUISE [None]
  - OSTEOMYELITIS [None]
  - GASTROOESOPHAGEAL REFLUX DISEASE [None]
  - HYPERHIDROSIS [None]
  - ANKLE FRACTURE [None]
  - BURSITIS [None]
  - DENTAL CARIES [None]
  - FISTULA DISCHARGE [None]
  - TEMPOROMANDIBULAR JOINT SYNDROME [None]
  - DRUG HYPERSENSITIVITY [None]
